FAERS Safety Report 5493719-5 (Version None)
Quarter: 2007Q4

REPORT INFORMATION
  Report Type: 
  Country: None (occurrence: None)
  Receive Date: 20071015
  Receipt Date: 20070830
  Transmission Date: 20080405
  Serious: No
  Sender: FDA-Public Use
  Company Number: 2007SP003048

PATIENT
  Sex: Male

DRUGS (2)
  1. LUNESTA [Suspect]
     Indication: INSOMNIA
     Dosage: 2 MG;ORAL   2 MG;ORAL
     Route: 048
     Dates: start: 20070701, end: 20070801
  2. LUNESTA [Suspect]
     Indication: INSOMNIA
     Dosage: 2 MG;ORAL   2 MG;ORAL
     Route: 048
     Dates: start: 20070801

REACTIONS (1)
  - INSOMNIA [None]
